FAERS Safety Report 16033795 (Version 3)
Quarter: 2019Q2

REPORT INFORMATION
  Report Type: Report from Study
  Country: US (occurrence: US)
  Receive Date: 20190305
  Receipt Date: 20190415
  Transmission Date: 20190711
  Serious: Yes (Hospitalization, Other)
  Sender: FDA-Public Use
  Company Number: US-AMGEN-USASL2019034321

PATIENT
  Age: 58 Year
  Sex: Male

DRUGS (2)
  1. AIMOVIG [Suspect]
     Active Substance: ERENUMAB-AOOE
     Indication: MIGRAINE
     Dosage: 140 MILLIGRAM, UNK
     Route: 058
  2. CODEINE [Concomitant]
     Active Substance: CODEINE
     Indication: TENSION HEADACHE
     Dosage: UNK UNK, AS NECESSARY
     Route: 065

REACTIONS (3)
  - Chest pain [Unknown]
  - Spinal fusion surgery [Unknown]
  - Intracranial mass [Unknown]

NARRATIVE: CASE EVENT DATE: 20181031
